FAERS Safety Report 7984008-5 (Version None)
Quarter: 2011Q4

REPORT INFORMATION
  Report Type: 
  Country: None (occurrence: None)
  Receive Date: 20111216
  Receipt Date: 20111212
  Transmission Date: 20120403
  Serious: Yes (Death, Hospitalization)
  Sender: FDA-Public Use
  Company Number: FR-PFIZER INC-2011301795

PATIENT
  Age: 56 Year
  Sex: Male

DRUGS (10)
  1. SOLU-MEDROL [Suspect]
     Dosage: UNK
     Route: 042
     Dates: start: 20110530, end: 20110608
  2. NOZINAN [Suspect]
     Dosage: UNK
     Dates: start: 20110607, end: 20110610
  3. NEXIUM [Suspect]
     Dosage: UNK
     Dates: start: 20110530, end: 20110610
  4. PREDNISONE TAB [Concomitant]
     Dosage: UNK
     Dates: start: 20110501
  5. FOSCAVIR [Suspect]
     Dosage: UNK
     Dates: start: 20110601, end: 20110611
  6. ROCEPHIN [Suspect]
     Dosage: UNK
     Route: 042
     Dates: start: 20110529, end: 20110608
  7. ROCEPHIN [Suspect]
     Dosage: UNK
     Route: 042
     Dates: start: 20110610, end: 20110611
  8. FLAGYL [Suspect]
     Dosage: UNK
     Dates: start: 20110529, end: 20110608
  9. ACUPAN [Concomitant]
     Dosage: UNK
     Dates: start: 20110606, end: 20110609
  10. UMULINE [Concomitant]
     Dosage: UNK
     Dates: start: 20110530, end: 20110607

REACTIONS (13)
  - TOXIC EPIDERMAL NECROLYSIS [None]
  - PANCYTOPENIA [None]
  - ANAEMIA [None]
  - RENAL FAILURE ACUTE [None]
  - HYPERKALAEMIA [None]
  - DISSEMINATED INTRAVASCULAR COAGULATION [None]
  - ESCHERICHIA SEPSIS [None]
  - SIMPLEX VIRUS TEST POSITIVE [None]
  - HAEMODYNAMIC INSTABILITY [None]
  - HAEMOLYSIS [None]
  - VENTRICULAR FIBRILLATION [None]
  - SHOCK [None]
  - CARDIO-RESPIRATORY ARREST [None]
